FAERS Safety Report 6418625-0 (Version None)
Quarter: 2009Q4

REPORT INFORMATION
  Report Type: 
  Country: None (occurrence: None)
  Receive Date: 20091021
  Receipt Date: 20090729
  Transmission Date: 20100525
  Serious: No
  Sender: FDA-Public Use
  Company Number: ALL1-2009-02087

PATIENT
  Age: 10 Year
  Sex: Male
  Weight: 36.3 kg

DRUGS (2)
  1. VYVANSE [Suspect]
     Indication: ATTENTION DEFICIT/HYPERACTIVITY DISORDER
     Dates: start: 20080801, end: 20080801
  2. ZYRTEC [Concomitant]

REACTIONS (2)
  - CONDITION AGGRAVATED [None]
  - IMPULSIVE BEHAVIOUR [None]
